FAERS Safety Report 19605137 (Version 1)
Quarter: 2021Q3

REPORT INFORMATION
  Report Type: Spontaneous
  Country: DE (occurrence: DE)
  Receive Date: 20210723
  Receipt Date: 20210723
  Transmission Date: 20211014
  Serious: Yes (Other)
  Sender: FDA-Public Use
  Company Number: NVSC2021DE163281

PATIENT
  Sex: Male

DRUGS (1)
  1. METHOTREXATE. [Suspect]
     Active Substance: METHOTREXATE
     Indication: TONGUE CANCER METASTATIC
     Dosage: UNK, QW
     Route: 065
     Dates: start: 202010, end: 202101

REACTIONS (1)
  - Neoplasm progression [Unknown]
